FAERS Safety Report 23724932 (Version 1)
Quarter: 2024Q2

REPORT INFORMATION
  Report Type: Report from Study
  Country: CA (occurrence: CA)
  Receive Date: 20240410
  Receipt Date: 20240410
  Transmission Date: 20240716
  Serious: Yes (Hospitalization)
  Sender: FDA-Public Use
  Company Number: CA-ABBVIE-5709767

PATIENT
  Age: 35 Year
  Sex: Female

DRUGS (2)
  1. SKYRIZI [Suspect]
     Active Substance: RISANKIZUMAB-RZAA
     Indication: Crohn^s disease
     Dosage: WEEK 4?ONE IN ONCE
     Route: 042
     Dates: start: 20240209, end: 20240209
  2. SKYRIZI [Suspect]
     Active Substance: RISANKIZUMAB-RZAA
     Indication: Crohn^s disease
     Dosage: WEEK 0?ONE IN ONCE
     Route: 042
     Dates: start: 20240112, end: 20240112

REACTIONS (1)
  - Bacterial infection [Recovering/Resolving]

NARRATIVE: CASE EVENT DATE: 20240305
